FAERS Safety Report 7150759-8 (Version None)
Quarter: 2010Q4

REPORT INFORMATION
  Report Type: 
  Country: None (occurrence: None)
  Receive Date: 20101210
  Receipt Date: 20101201
  Transmission Date: 20110411
  Serious: Yes (Hospitalization)
  Sender: FDA-Public Use
  Company Number: CA-JNJFOC-20101201905

PATIENT
  Sex: Female
  Weight: 72.7 kg

DRUGS (10)
  1. REMICADE [Suspect]
     Indication: CROHN'S DISEASE
     Route: 042
  2. SEROQUEL [Concomitant]
  3. FISH OIL [Concomitant]
  4. FLAX SEED OIL [Concomitant]
  5. MULTI-VITAMINS [Concomitant]
  6. CALCIUM [Concomitant]
  7. ZOLOFT [Concomitant]
  8. ATIVAN [Concomitant]
  9. PROPANOLOL HCL [Concomitant]
  10. CYMBALTA [Concomitant]

REACTIONS (3)
  - BRIEF PSYCHOTIC DISORDER, WITH POSTPARTUM ONSET [None]
  - DRUG EXPOSURE DURING PREGNANCY [None]
  - INTENTIONAL SELF-INJURY [None]
